FAERS Safety Report 18811091 (Version 1)
Quarter: 2021Q1

REPORT INFORMATION
  Report Type: Spontaneous
  Country: US (occurrence: US)
  Receive Date: 20210130
  Receipt Date: 20210130
  Transmission Date: 20210419
  Serious: No
  Sender: FDA-Public Use
  Company Number: US-AMGEN-USASP2020213884

PATIENT
  Age: 64 Year
  Sex: Female
  Weight: 63.5 kg

DRUGS (1)
  1. ENBREL [Suspect]
     Active Substance: ETANERCEPT
     Indication: ARTHRITIS
     Dosage: 50 MG, WEEKLY (50MG SUBCUTANEOUS INJECTION ONCE WEEKLY SURE CLICK)
     Route: 058
     Dates: start: 2010

REACTIONS (2)
  - Therapeutic product effect decreased [Not Recovered/Not Resolved]
  - Arthritis [Not Recovered/Not Resolved]
